FAERS Safety Report 22635104 (Version 1)
Quarter: 2023Q2

REPORT INFORMATION
  Report Type: Spontaneous
  Country: CN (occurrence: CN)
  Receive Date: 20230623
  Receipt Date: 20230623
  Transmission Date: 20230721
  Serious: Yes (Other)
  Sender: FDA-Public Use
  Company Number: CN-009507513-2306CHN010180

PATIENT
  Age: 47 Year
  Sex: Male
  Weight: 46 kg

DRUGS (3)
  1. KEYTRUDA [Suspect]
     Active Substance: PEMBROLIZUMAB
     Indication: Squamous cell carcinoma of lung
     Dosage: 100 MILLIGRAM, ONCE
     Route: 041
     Dates: start: 20200709, end: 20200709
  2. NEDAPLATIN [Suspect]
     Active Substance: NEDAPLATIN
     Indication: Squamous cell carcinoma of lung
     Dosage: 120 MG, ONCE
     Route: 041
     Dates: start: 20200711, end: 20200711
  3. PACLITAXEL [Suspect]
     Active Substance: PACLITAXEL
     Indication: Squamous cell carcinoma of lung
     Dosage: 0.2 G, ONCE
     Route: 041
     Dates: start: 20200710, end: 20200710

REACTIONS (2)
  - Myelosuppression [Recovering/Resolving]
  - Product use issue [Unknown]

NARRATIVE: CASE EVENT DATE: 20200709
